FAERS Safety Report 6898634-8 (Version None)
Quarter: 2010Q3

REPORT INFORMATION
  Report Type: 
  Country: None (occurrence: None)
  Receive Date: 20100729
  Receipt Date: 20100716
  Transmission Date: 20110219
  Serious: Yes (Hospitalization)
  Sender: FDA-Public Use
  Company Number: WAES 1007USA02103

PATIENT
  Age: 60 Year
  Sex: Female
  Weight: 82.5547 kg

DRUGS (5)
  1. COZAAR [Suspect]
     Indication: HYPERTENSION
     Dosage: 50 MG/DAILY/PO
     Route: 048
     Dates: start: 20090120, end: 20090204
  2. COZAAR [Suspect]
     Indication: HYPERTENSION
     Dosage: 50 MG/DAILY/PO
     Route: 048
     Dates: start: 20090302
  3. KENALOG [Concomitant]
  4. ASCORBIC ACID [Concomitant]
  5. ATENOLOL AND CHLORTHALIDONE [Concomitant]

REACTIONS (6)
  - ABSCESS BACTERIAL [None]
  - APHTHOUS STOMATITIS [None]
  - GINGIVAL ABSCESS [None]
  - NAUSEA [None]
  - ORAL BACTERIAL INFECTION [None]
  - OROPHARYNGEAL PAIN [None]
